FAERS Safety Report 11050697 (Version 2)
Quarter: 2015Q2

REPORT INFORMATION
  Report Type: Report from Study
  Country: US (occurrence: US)
  Receive Date: 20150421
  Receipt Date: 20150514
  Transmission Date: 20150821
  Serious: No
  Sender: FDA-Public Use
  Company Number: US-BIOGENIDEC-2015BI051087

PATIENT
  Age: 58 Year
  Sex: Female

DRUGS (37)
  1. CARAFATE [Concomitant]
     Active Substance: SUCRALFATE
  2. CLOBETASOL PROPIONATE. [Concomitant]
     Active Substance: CLOBETASOL PROPIONATE
  3. COUMADIN [Concomitant]
     Active Substance: WARFARIN SODIUM
  4. METHYLPREDNISOLONE. [Concomitant]
     Active Substance: METHYLPREDNISOLONE
  5. MYRBETRIQ [Concomitant]
     Active Substance: MIRABEGRON
  6. ROBITUSSIN (GUAIFENESIN) [Concomitant]
     Active Substance: GUAIFENESIN
  7. BUPROPION HCL [Concomitant]
     Active Substance: BUPROPION HYDROCHLORIDE
  8. HYDROMORPHONE [Concomitant]
     Active Substance: HYDROMORPHONE
  9. NASONEX [Concomitant]
     Active Substance: MOMETASONE FUROATE
  10. NYSTATIN. [Concomitant]
     Active Substance: NYSTATIN
  11. XANAX [Concomitant]
     Active Substance: ALPRAZOLAM
  12. PREDNISONE. [Concomitant]
     Active Substance: PREDNISONE
  13. TOVIAZ [Concomitant]
     Active Substance: FESOTERODINE FUMARATE
  14. AMITRIPTYLINE HCL [Concomitant]
     Active Substance: AMITRIPTYLINE
  15. METOCLOPRAMIDE HCL [Concomitant]
     Active Substance: METOCLOPRAMIDE HYDROCHLORIDE
  16. ROBITUSSIN (GUAIFENESIN) [Concomitant]
     Active Substance: GUAIFENESIN
  17. LIPITOR [Concomitant]
     Active Substance: ATORVASTATIN CALCIUM
  18. MIRALAX [Concomitant]
     Active Substance: POLYETHYLENE GLYCOL 3350
  19. RANITIDINE [Concomitant]
     Active Substance: RANITIDINE\RANITIDINE HYDROCHLORIDE
  20. TYSABRI [Suspect]
     Active Substance: NATALIZUMAB
     Indication: MULTIPLE SCLEROSIS
     Route: 042
     Dates: start: 20120717, end: 20121016
  21. CYMBALTA [Concomitant]
     Active Substance: DULOXETINE HYDROCHLORIDE
  22. ENOXAPARIN [Concomitant]
     Active Substance: ENOXAPARIN
  23. SINGULAIR [Concomitant]
     Active Substance: MONTELUKAST SODIUM
  24. SUMATRIPTAN. [Concomitant]
     Active Substance: SUMATRIPTAN
  25. VITAMIN D 2 [Concomitant]
  26. ALBUTEROL. [Concomitant]
     Active Substance: ALBUTEROL
  27. GABAPENTIN. [Concomitant]
     Active Substance: GABAPENTIN
  28. ONDANSETRON HCL [Concomitant]
     Active Substance: ONDANSETRON HYDROCHLORIDE
  29. PRILOSEC [Concomitant]
     Active Substance: OMEPRAZOLE MAGNESIUM
  30. PROVIGIL [Concomitant]
     Active Substance: MODAFINIL
  31. TIZANIDINE (TIZANIDINE) [Concomitant]
     Active Substance: TIZANIDINE
  32. VALACYCLOVIR [Concomitant]
     Active Substance: VALACYCLOVIR HYDROCHLORIDE
  33. VITAMIN B12 [Concomitant]
     Active Substance: CYANOCOBALAMIN
  34. VITAMIN B 2 [Concomitant]
  35. FLOVENT [Concomitant]
     Active Substance: FLUTICASONE PROPIONATE
  36. METAMUCIL [Concomitant]
     Active Substance: PLANTAGO SEED
  37. TRAVATAN Z [Concomitant]
     Active Substance: TRAVOPROST

REACTIONS (4)
  - Vomiting [Recovered/Resolved]
  - Speech disorder [Recovered/Resolved]
  - Drug intolerance [Unknown]
  - Pain [Unknown]

NARRATIVE: CASE EVENT DATE: 201210
